FAERS Safety Report 7503433-X (Version None)
Quarter: 2011Q2

REPORT INFORMATION
  Report Type: 
  Country: None (occurrence: None)
  Receive Date: 20110524
  Receipt Date: 20110524
  Transmission Date: 20111010
  Serious: Yes (Other)
  Sender: FDA-Public Use
  Company Number: None

PATIENT
  Age: 19 Year
  Sex: Female
  Weight: 97.6 kg

DRUGS (4)
  1. BACTRIM DS [Concomitant]
  2. MERCAPTOPURINE [Concomitant]
  3. VINCRISTINE [Suspect]
     Indication: ACUTE LYMPHOCYTIC LEUKAEMIA
     Dosage: 2 MG ONE TIME IV DRIP
     Route: 041
     Dates: start: 20100902, end: 20100902
  4. METHOTREXATE [Concomitant]

REACTIONS (2)
  - CATHETER SITE ERYTHEMA [None]
  - EXTRAVASATION [None]
